FAERS Safety Report 13905675 (Version 1)
Quarter: 2017Q3

REPORT INFORMATION
  Report Type: Report from Study
  Country: CL (occurrence: CL)
  Receive Date: 20170825
  Receipt Date: 20170825
  Transmission Date: 20171127
  Serious: Yes (Other)
  Sender: FDA-Public Use
  Company Number: PHHY2017CL123832

PATIENT
  Age: 78 Year
  Sex: Male
  Weight: 78 kg

DRUGS (1)
  1. ENTRESTO [Suspect]
     Active Substance: SACUBITRIL\VALSARTAN
     Indication: CARDIAC FAILURE
     Dosage: 50 MG, BID
     Route: 048

REACTIONS (6)
  - Joint swelling [Unknown]
  - Fall [Unknown]
  - Visual impairment [Unknown]
  - Eye haemorrhage [Recovering/Resolving]
  - Head injury [Unknown]
  - Malaise [Unknown]

NARRATIVE: CASE EVENT DATE: 20170813
